FAERS Safety Report 8349620-2 (Version None)
Quarter: 2012Q2

REPORT INFORMATION
  Report Type: 
  Country: None (occurrence: None)
  Receive Date: 20120510
  Receipt Date: 20120502
  Transmission Date: 20120825
  Serious: Yes (Hospitalization, Other)
  Sender: FDA-Public Use
  Company Number: US-BAYER-2011-112005

PATIENT
  Age: 34 Year
  Sex: Female
  Weight: 104.31 kg

DRUGS (5)
  1. CYMBALTA [Concomitant]
  2. ACETAMINOPHEN [Concomitant]
  3. YASMIN [Suspect]
     Indication: CONTRACEPTION
     Dosage: UNK
     Route: 048
     Dates: start: 20080601, end: 20081201
  4. DROSPIRENONE AND ETHINYL ESTRADIOL [Suspect]
     Indication: CONTRACEPTION
     Dosage: UNK
     Route: 048
     Dates: start: 20080801, end: 20081201
  5. IRON SULFATETHIAMIN COMPOUND TAB [Concomitant]
     Indication: IRON DEFICIENCY ANAEMIA

REACTIONS (9)
  - THROMBOSIS [None]
  - POST THROMBOTIC SYNDROME [None]
  - VENA CAVA THROMBOSIS [None]
  - PULMONARY EMBOLISM [None]
  - DEEP VEIN THROMBOSIS [None]
  - SWELLING [None]
  - RENAL DISORDER [None]
  - PAIN [None]
  - DYSPNOEA [None]
